FAERS Safety Report 8482095-1 (Version None)
Quarter: 2012Q3

REPORT INFORMATION
  Report Type: 
  Country: None (occurrence: None)
  Receive Date: 20120702
  Receipt Date: 20120625
  Transmission Date: 20120928
  Serious: Yes (Death, Hospitalization, Other)
  Sender: FDA-Public Use
  Company Number: US-PFIZER INC-2012088214

PATIENT
  Sex: Male

DRUGS (21)
  1. POTASSIUM CHLORIDE [Concomitant]
     Dosage: 20 MEQ, 1X/DAY
     Route: 048
  2. COUMADIN [Concomitant]
     Dosage: 2.5 5MG, 5MG MONDAY, SAT OTHER DAYS 2.5MG
     Route: 048
  3. COLACE [Concomitant]
     Dosage: 200 MG, 1X/DAY
     Route: 048
  4. FLOVENT [Concomitant]
     Dosage: 2 PUFFS, 2X/DAY
     Route: 055
  5. DUONEB [Concomitant]
     Dosage: 1 PUFF (PO) BY MOUTH 4XDAY
  6. COREG [Concomitant]
     Dosage: 3.125 MG, 2X/DAY
     Route: 048
  7. MUCINEX [Concomitant]
     Dosage: 1 2 TABS
     Route: 048
  8. INSPRA [Suspect]
     Dosage: 25 MG, DAILY
     Route: 048
  9. MULTI-VITAMINS [Concomitant]
     Dosage: 1 DF, 1X/DAY
     Route: 048
  10. COMBIVENT [Concomitant]
     Dosage: 2 PUFFS PO (BY MOUTH)
     Route: 048
  11. MIRTAZAPINE [Concomitant]
     Dosage: 30 MG, 1X/DAY
     Route: 048
  12. WELLBUTRIN [Concomitant]
     Dosage: 150 MG, 2X/DAY
     Route: 048
  13. PRILOSEC [Concomitant]
     Dosage: 20 MG, 1X/DAY
     Route: 048
  14. ASPIRIN [Concomitant]
     Dosage: 81 MG, 1X/DAY
     Route: 048
  15. LISINOPRIL [Concomitant]
  16. REVATIO [Suspect]
     Dosage: 20 MG, 3X/DAY
     Route: 048
  17. SIMVASTATIN [Concomitant]
     Dosage: 40 MG, 1X/DAY
     Route: 048
  18. ASCORBIC ACID [Concomitant]
     Dosage: 500 MG, 2X/DAY
     Route: 048
  19. NOVOLOG [Concomitant]
     Route: 058
  20. PROZAC [Concomitant]
     Dosage: 20 MG, 1X/DAY
     Route: 048
  21. LANTUS [Concomitant]
     Dosage: 30 IU, 1X/DAY AT BEDTIME
     Route: 058

REACTIONS (4)
  - FALL [None]
  - ASTHENIA [None]
  - RENAL FAILURE ACUTE [None]
  - CARDIO-RESPIRATORY ARREST [None]
